FAERS Safety Report 4704705-4 (Version None)
Quarter: 2005Q2

REPORT INFORMATION
  Report Type: 
  Country: None (occurrence: None)
  Receive Date: 20050630
  Receipt Date: 20050627
  Transmission Date: 20051028
  Serious: Yes (Other)
  Sender: FDA-Public Use
  Company Number: US-MERCK-0506USA03808

PATIENT
  Age: 78 Year
  Sex: Male

DRUGS (5)
  1. VIOXX [Suspect]
     Indication: OSTEOARTHRITIS
     Route: 048
  2. ATENOLOL [Concomitant]
     Route: 065
  3. ZOLOFT [Concomitant]
     Route: 065
  4. BUSPAR [Concomitant]
     Route: 065
  5. [THERAPY UNSPECIFIED] [Concomitant]
     Route: 065

REACTIONS (2)
  - COLONIC HAEMORRHAGE [None]
  - RETINAL VEIN OCCLUSION [None]
